FAERS Safety Report 12908086 (Version 1)
Quarter: 2016Q4

REPORT INFORMATION
  Report Type: Spontaneous
  Country: US (occurrence: US)
  Receive Date: 20161103
  Receipt Date: 20161103
  Transmission Date: 20170207
  Serious: No
  Sender: FDA-Public Use
  Company Number: US-OTSUKA-2016_022045

PATIENT
  Sex: Female

DRUGS (2)
  1. ONZETRA [Suspect]
     Active Substance: SUMATRIPTAN SUCCINATE
     Indication: STATUS MIGRAINOSUS
  2. ONZETRA [Suspect]
     Active Substance: SUMATRIPTAN SUCCINATE
     Indication: MIGRAINE WITHOUT AURA
     Dosage: 1 DF (1 NOSEPIECE IN EACH NOSTRIL)
     Route: 045

REACTIONS (1)
  - Drug ineffective [Unknown]
